FAERS Safety Report 25200443 (Version 1)
Quarter: 2025Q2

REPORT INFORMATION
  Report Type: Spontaneous
  Country: JP (occurrence: JP)
  Receive Date: 20250415
  Receipt Date: 20250415
  Transmission Date: 20250717
  Serious: Yes (Hospitalization, Other)
  Sender: GILEAD
  Company Number: JP-GILEAD-2025-0710186

PATIENT
  Age: 65 Year
  Sex: Male

DRUGS (4)
  1. YESCARTA [Suspect]
     Active Substance: AXICABTAGENE CILOLEUCEL
     Indication: High-grade B-cell lymphoma
     Route: 065
     Dates: start: 20250106, end: 20250106
  2. DEXAMETHASONE [Suspect]
     Active Substance: DEXAMETHASONE
     Indication: Product used for unknown indication
     Route: 065
     Dates: start: 202501
  3. FLUDARABINE PHOSPHATE [Concomitant]
     Active Substance: FLUDARABINE PHOSPHATE
     Dates: start: 20250101
  4. CYCLOPHOSPHAMIDE [Concomitant]
     Active Substance: CYCLOPHOSPHAMIDE
     Dates: start: 20250101

REACTIONS (15)
  - Cytomegalovirus viraemia [Unknown]
  - Cytomegalovirus infection reactivation [Unknown]
  - Herpes zoster infection neurological [Unknown]
  - Cytopenia [Unknown]
  - Cytokine release syndrome [Unknown]
  - Immune effector cell-associated neurotoxicity syndrome [Unknown]
  - Neutrophil count decreased [Unknown]
  - Blood immunoglobulin G decreased [Unknown]
  - Herpes zoster [Unknown]
  - Neuralgia [Unknown]
  - Bedridden [Unknown]
  - Hypoaesthesia [Unknown]
  - Asthenia [Unknown]
  - Bladder disorder [Unknown]
  - Anorectal disorder [Unknown]

NARRATIVE: CASE EVENT DATE: 20250101
